FAERS Safety Report 6804512-2 (Version None)
Quarter: 2010Q2

REPORT INFORMATION
  Report Type: 
  Country: None (occurrence: None)
  Receive Date: 20100628
  Receipt Date: 20070618
  Transmission Date: 20101027
  Serious: No
  Sender: FDA-Public Use
  Company Number: US-PFIZER INC-2007028020

PATIENT
  Sex: Female
  Weight: 79.38 kg

DRUGS (2)
  1. CADUET [Suspect]
     Dosage: 5/20 MG; 5/20 MG
     Dates: start: 20061101
  2. SYNTHROID [Concomitant]

REACTIONS (4)
  - GINGIVAL BLEEDING [None]
  - GINGIVAL ERYTHEMA [None]
  - GINGIVAL PAIN [None]
  - GINGIVITIS [None]
